FAERS Safety Report 17214486 (Version 1)
Quarter: 2019Q4

REPORT INFORMATION
  Report Type: Spontaneous
  Country: GR (occurrence: GR)
  Receive Date: 20191230
  Receipt Date: 20191230
  Transmission Date: 20200122
  Serious: Yes (Other)
  Sender: FDA-Public Use
  Company Number: GR-MYLANLABS-2019M1127564

PATIENT
  Sex: Female
  Weight: 62 kg

DRUGS (15)
  1. PREZOLON [Suspect]
     Active Substance: PREDNISOLONE
     Dosage: 5 DAYS, 2 CYCLES
     Route: 042
     Dates: start: 20190506, end: 20190527
  2. ARA-C [Suspect]
     Active Substance: CYTARABINE
     Indication: B-CELL LYMPHOMA
  3. ARA-C [Suspect]
     Active Substance: CYTARABINE
     Indication: B-CELL LYMPHOMA
     Dosage: 3740 MILLIGRAM
     Route: 042
     Dates: start: 20190506, end: 20190527
  4. PLATINOL [Suspect]
     Active Substance: CISPLATIN
     Indication: B-CELL LYMPHOMA
     Dosage: 46 MILLIGRAM
     Route: 042
     Dates: start: 20190506, end: 20190527
  5. RITUXIMAB;VORHYALURONIDASE ALFA [Suspect]
     Active Substance: HYALURONIDASE (HUMAN RECOMBINANT)\RITUXIMAB
     Indication: B-CELL LYMPHOMA
     Dosage: CYCLE 2 DAY 1 FOR 6 CYCLES
     Route: 058
  6. DOXORUBICIN [Suspect]
     Active Substance: DOXORUBICIN
     Indication: B-CELL LYMPHOMA
     Dosage: DAY 1 CYCLES 1 FOR 6 CYCLES
     Route: 042
     Dates: end: 20190329
  7. RITUXIMAB. [Suspect]
     Active Substance: RITUXIMAB
     Dosage: 2 SALVAGE REGIMENS, 2 CYCLES
     Route: 042
     Dates: start: 20190506, end: 20190527
  8. CYCLOPHOSPHAMIDE. [Suspect]
     Active Substance: CYCLOPHOSPHAMIDE
     Indication: B-CELL LYMPHOMA
     Dosage: DAY 1 CYCLES 1 FOR 6 CYCLES
     Route: 042
     Dates: end: 20190329
  9. PLATINOL [Suspect]
     Active Substance: CISPLATIN
     Indication: B-CELL LYMPHOMA
     Dosage: UNK
  10. RITUXIMAB. [Suspect]
     Active Substance: RITUXIMAB
     Indication: B-CELL LYMPHOMA
     Dosage: DAY 1 CYCLE 1 FOR 6 CYCLES
     Route: 042
     Dates: end: 20190329
  11. VEPESID [Suspect]
     Active Substance: ETOPOSIDE
     Indication: B-CELL LYMPHOMA
     Dosage: UNK
     Route: 042
     Dates: start: 20190506, end: 20190527
  12. VEPESID [Suspect]
     Active Substance: ETOPOSIDE
     Indication: B-CELL LYMPHOMA
  13. RITUXIMAB. [Suspect]
     Active Substance: RITUXIMAB
     Dosage: 600 MILLIGRAM
     Route: 042
     Dates: start: 20181130
  14. PREZOLON [Suspect]
     Active Substance: PREDNISOLONE
     Indication: B-CELL LYMPHOMA
     Dosage: DAY 1 CYCLES 5 FOR 6 CYCLES
     Route: 042
     Dates: end: 20190329
  15. RITUXIMAB;VORHYALURONIDASE ALFA [Suspect]
     Active Substance: HYALURONIDASE (HUMAN RECOMBINANT)\RITUXIMAB
     Indication: B-CELL LYMPHOMA
     Dosage: UNK

REACTIONS (3)
  - B-cell lymphoma refractory [Unknown]
  - Pain [Unknown]
  - Pyrexia [Unknown]
